FAERS Safety Report 26149179 (Version 2)
Quarter: 2025Q4

REPORT INFORMATION
  Report Type: Report from Study
  Country: US (occurrence: US)
  Receive Date: 20251212
  Receipt Date: 20251218
  Transmission Date: 20260118
  Serious: Yes (Hospitalization, Other)
  Sender: ABBVIE
  Company Number: US-ABBVIE-6584024

PATIENT
  Sex: Female

DRUGS (1)
  1. RINVOQ [Suspect]
     Active Substance: UPADACITINIB
     Indication: Product used for unknown indication
     Route: 048

REACTIONS (6)
  - Cholecystectomy [Unknown]
  - Movement disorder [Unknown]
  - Benign bone neoplasm [Unknown]
  - Spinal operation [Unknown]
  - Walking aid user [Unknown]
  - Mobility decreased [Unknown]
